FAERS Safety Report 17168649 (Version 1)
Quarter: 2019Q4

REPORT INFORMATION
  Report Type: Spontaneous
  Country: IT (occurrence: IT)
  Receive Date: 20191218
  Receipt Date: 20191218
  Transmission Date: 20200122
  Serious: Yes (Hospitalization, Other)
  Sender: FDA-Public Use
  Company Number: IT-TEVA-2019-IT-1154991

PATIENT
  Age: 77 Year
  Sex: Female

DRUGS (4)
  1. OXALIPLATIN. [Suspect]
     Active Substance: OXALIPLATIN
     Dosage: 85 MG/MQ DAY 1 EVERY 14 DAYS[Q14]
     Route: 065
  2. FLUOROURACIL. [Suspect]
     Active Substance: FLUOROURACIL
     Dosage: 400 MG/MQ DAYS 1,2 [Q14], 5-FU 1200 MG/MQ IC 48 HOURS [Q14]
     Route: 065
  3. LEUCOVORIN. [Suspect]
     Active Substance: LEUCOVORIN
     Dosage: 100 MG/MQ DAYS 1,2 [Q14]
     Route: 065
  4. IRINOTECAN [Suspect]
     Active Substance: IRINOTECAN
     Dosage: 125 MG EVERY 7 DAYS
     Route: 065

REACTIONS (2)
  - Diarrhoea [Unknown]
  - Gastrointestinal toxicity [Recovered/Resolved]
